FAERS Safety Report 17043283 (Version 1)
Quarter: 2019Q4

REPORT INFORMATION
  Report Type: Spontaneous
  Country: ES (occurrence: ES)
  Receive Date: 20191118
  Receipt Date: 20191118
  Transmission Date: 20200122
  Serious: Yes (Other)
  Sender: FDA-Public Use
  Company Number: ES-PFIZER INC-2019491677

PATIENT
  Age: 37 Year
  Sex: Female

DRUGS (8)
  1. TERRAMYCIN [Suspect]
     Active Substance: OXYTETRACYCLINE\OXYTETRACYCLINE HYDROCHLORIDE
     Indication: ANTIBIOTIC THERAPY
  2. METRONIDAZOLE. [Suspect]
     Active Substance: METRONIDAZOLE
     Indication: PROBIOTIC THERAPY
     Dosage: 500 MG, 2X/DAY
     Dates: start: 2017, end: 2017
  3. AMOXICILLIN/CLAVULANIC ACID [Suspect]
     Active Substance: AMOXICILLIN\CLAVULANIC ACID
     Indication: ANTIBIOTIC THERAPY
     Dosage: UNK, 3X/DAY (500/125 MG EVERY 8 H FOR SEVEN DAYS)
  4. AMOXICILLIN/CLAVULANIC ACID [Suspect]
     Active Substance: AMOXICILLIN\CLAVULANIC ACID
     Indication: ENDOMETRITIS
  5. METHOTREXATE SODIUM. [Concomitant]
     Active Substance: METHOTREXATE SODIUM
     Indication: ECTOPIC PREGNANCY
     Dosage: 1 MG/KG, UNK
     Route: 030
     Dates: start: 2017, end: 2017
  6. AMOXICILLIN/CLAVULANIC ACID [Suspect]
     Active Substance: AMOXICILLIN\CLAVULANIC ACID
     Indication: ESCHERICHIA INFECTION
     Dosage: UNK, 2X/DAY (1,000/62.5 MG FOR SEVEN DAYS)
     Dates: start: 201710
  7. TERRAMYCIN [Suspect]
     Active Substance: OXYTETRACYCLINE\OXYTETRACYCLINE HYDROCHLORIDE
     Indication: ENDOMETRITIS
     Dosage: UNK
     Dates: start: 201804
  8. METRONIDAZOLE. [Suspect]
     Active Substance: METRONIDAZOLE
     Indication: ENDOMETRITIS
     Dosage: 500 MG, SINGLE
     Route: 067
     Dates: start: 2017, end: 2017

REACTIONS (2)
  - Abortion spontaneous [Unknown]
  - Drug resistance [Unknown]
